FAERS Safety Report 5568532-0 (Version None)
Quarter: 2007Q4

REPORT INFORMATION
  Report Type: 
  Country: None (occurrence: None)
  Receive Date: 20071220
  Receipt Date: 20071210
  Transmission Date: 20080405
  Serious: Yes (Hospitalization)
  Sender: FDA-Public Use
  Company Number: FR-ROCHE-536674

PATIENT
  Age: 71 Year
  Sex: Female

DRUGS (1)
  1. XELODA [Suspect]
     Indication: RECTAL CANCER
     Dosage: DOSAGE REGIMEN: 1300 MG Q
     Route: 065
     Dates: start: 20070903, end: 20070914

REACTIONS (5)
  - COLD SWEAT [None]
  - DYSARTHRIA [None]
  - MEMORY IMPAIRMENT [None]
  - SPEECH DISORDER [None]
  - TREMOR [None]
